FAERS Safety Report 12464995 (Version 3)
Quarter: 2016Q2

REPORT INFORMATION
  Report Type: Report from Study
  Country: US (occurrence: US)
  Receive Date: 20160614
  Receipt Date: 20160622
  Transmission Date: 20160815
  Serious: Yes (Disabling, Other)
  Sender: FDA-Public Use
  Company Number: US-ABBVIE-16P-163-1647552-00

PATIENT
  Age: 39 Year
  Sex: Female
  Weight: 89.89 kg

DRUGS (2)
  1. LUPRON DEPOT [Suspect]
     Active Substance: LEUPROLIDE ACETATE
     Indication: ENDOMETRIOSIS
     Route: 050
     Dates: start: 2006, end: 2007
  2. LUPRON DEPOT [Suspect]
     Active Substance: LEUPROLIDE ACETATE
     Indication: ENDOMETRIOSIS
     Dosage: HS
     Route: 050
     Dates: start: 20160225

REACTIONS (17)
  - Transient ischaemic attack [Not Recovered/Not Resolved]
  - Hot flush [Recovered/Resolved]
  - Hemiparesis [Recovering/Resolving]
  - Multiple allergies [Not Recovered/Not Resolved]
  - Thrombosis [Recovered/Resolved]
  - Hysterectomy [Recovered/Resolved]
  - Endometriosis [Not Recovered/Not Resolved]
  - Pelvic pain [Recovered/Resolved]
  - Fall [Recovered/Resolved]
  - Musculoskeletal stiffness [Not Recovered/Not Resolved]
  - Weight decreased [Recovered/Resolved]
  - Hypoaesthesia [Recovering/Resolving]
  - Meniscus injury [Recovered/Resolved]
  - Hot flush [Not Recovered/Not Resolved]
  - Pelvic pain [Not Recovered/Not Resolved]
  - Meniscus injury [Recovered/Resolved]
  - Weight increased [Not Recovered/Not Resolved]

NARRATIVE: CASE EVENT DATE: 2006
